FAERS Safety Report 6674863-3 (Version None)
Quarter: 2010Q2

REPORT INFORMATION
  Report Type: 
  Country: None (occurrence: None)
  Receive Date: 20100409
  Receipt Date: 20100406
  Transmission Date: 20101027
  Serious: Yes (Death)
  Sender: FDA-Public Use
  Company Number: DE-JNJFOC-20100207774

PATIENT
  Age: 73 Year
  Sex: Male

DRUGS (12)
  1. RISPERDAL [Suspect]
     Indication: DRUG USE FOR UNKNOWN INDICATION
     Route: 048
     Dates: start: 20091016
  2. RISPERDAL [Suspect]
     Route: 048
     Dates: start: 20091016
  3. RISPERDAL [Suspect]
     Route: 048
     Dates: start: 20091016
  4. FLUNITRAZEPAM [Suspect]
     Indication: DRUG USE FOR UNKNOWN INDICATION
     Route: 065
     Dates: start: 20091031, end: 20091105
  5. LEVOTHYROXINE SODIUM [Concomitant]
     Route: 065
     Dates: end: 20091106
  6. FINASTERID [Concomitant]
     Route: 065
     Dates: end: 20091106
  7. OMEPRAZOLE [Concomitant]
     Route: 065
     Dates: end: 20091106
  8. TAMSULOSIN HCL [Concomitant]
     Route: 065
     Dates: end: 20091106
  9. DELIX [Concomitant]
     Route: 065
     Dates: end: 20091106
  10. EMBOLEX [Concomitant]
     Route: 058
     Dates: start: 20091017, end: 20091106
  11. FOLSAN [Concomitant]
     Route: 065
     Dates: start: 20091024, end: 20091106
  12. JONOSTERIL S [Concomitant]
     Route: 042
     Dates: start: 20091104, end: 20091106

REACTIONS (6)
  - BLOOD CREATININE INCREASED [None]
  - CARDIAC ARREST [None]
  - CARDIAC FAILURE [None]
  - CONVULSION [None]
  - ELECTROCARDIOGRAM QT PROLONGED [None]
  - OVERDOSE [None]
